FAERS Safety Report 18591107 (Version 2)
Quarter: 2020Q4

REPORT INFORMATION
  Report Type: Report from Study
  Country: IT (occurrence: IT)
  Receive Date: 20201208
  Receipt Date: 20201218
  Transmission Date: 20210114
  Serious: Yes (Death, Other)
  Sender: FDA-Public Use
  Company Number: IT-SHIONOGI, INC-2020000571

PATIENT

DRUGS (18)
  1. FETROJA [Suspect]
     Active Substance: CEFIDEROCOL SULFATE TOSYLATE
     Indication: ACINETOBACTER SEPSIS
  2. TIGECYCLINE. [Concomitant]
     Active Substance: TIGECYCLINE
     Indication: ACINETOBACTER SEPSIS
     Dosage: 100 MG X 2, P12
     Route: 042
     Dates: start: 20201113, end: 20201120
  3. TIGECYCLINE. [Concomitant]
     Active Substance: TIGECYCLINE
     Indication: ACINETOBACTER BACTERAEMIA
  4. ACETYLCYSTEINE. [Concomitant]
     Active Substance: ACETYLCYSTEINE
     Indication: INCREASED BRONCHIAL SECRETION
     Dosage: UNKNOWN
     Route: 065
  5. DOMPERIDONE [Concomitant]
     Active Substance: DOMPERIDONE
     Indication: IMPAIRED GASTRIC EMPTYING
     Dosage: UNKNOWN
     Route: 065
  6. VANCOMYCIN [Concomitant]
     Active Substance: VANCOMYCIN
     Indication: ENTEROCOCCAL INFECTION
     Dosage: 1 G, P12
     Route: 042
     Dates: start: 20201112
  7. COLISTIN [Concomitant]
     Active Substance: COLISTIN
     Indication: ACINETOBACTER SEPSIS
     Dosage: 4.5 MU, P12
     Route: 042
     Dates: start: 20201113, end: 20201120
  8. PHYTOMENADIONE [Concomitant]
     Active Substance: PHYTONADIONE
     Indication: INTERNATIONAL NORMALISED RATIO INCREASED
     Dosage: UNKNOWN
     Route: 065
  9. CISATRACURIUM. [Concomitant]
     Active Substance: CISATRACURIUM
     Indication: NEUROMUSCULAR BLOCKADE
     Dosage: UNKNOWN
     Route: 065
  10. FETROJA [Suspect]
     Active Substance: CEFIDEROCOL SULFATE TOSYLATE
     Indication: MULTIPLE-DRUG RESISTANCE
  11. ALBUMIN [Concomitant]
     Active Substance: ALBUMIN HUMAN
     Indication: HYPOALBUMINAEMIA
     Dosage: 50 ML, P8
     Route: 042
     Dates: start: 20201121
  12. COLISTIN [Concomitant]
     Active Substance: COLISTIN
     Indication: ACINETOBACTER BACTERAEMIA
  13. ENOXAPARIN SODIUM. [Concomitant]
     Active Substance: ENOXAPARIN SODIUM
     Indication: THROMBOSIS PROPHYLAXIS
     Dosage: UNKNOWN
     Route: 065
  14. FETROJA [Suspect]
     Active Substance: CEFIDEROCOL SULFATE TOSYLATE
     Indication: ACINETOBACTER BACTERAEMIA
     Dosage: 2 G, Q8
     Route: 042
     Dates: start: 20201121
  15. VANCOMYCIN [Concomitant]
     Active Substance: VANCOMYCIN
     Indication: SEPSIS
  16. FENTANYL. [Concomitant]
     Active Substance: FENTANYL
     Indication: SEDATION
     Dosage: UNK
     Route: 065
     Dates: start: 20201104, end: 20201127
  17. FUROSEMIDE. [Concomitant]
     Active Substance: FUROSEMIDE
     Indication: OEDEMA
     Dosage: UNKNOWN
     Route: 065
  18. LANSOPRAZOLE. [Concomitant]
     Active Substance: LANSOPRAZOLE
     Indication: GASTROINTESTINAL DISORDER PROPHYLAXIS
     Dosage: UNKNOWN
     Route: 065

REACTIONS (5)
  - Drug ineffective [Unknown]
  - Respiratory failure [Fatal]
  - Generalised tonic-clonic seizure [Recovered/Resolved]
  - Acinetobacter sepsis [Fatal]
  - General physical health deterioration [Fatal]

NARRATIVE: CASE EVENT DATE: 20201124
